FAERS Safety Report 9104995 (Version 2)
Quarter: 2013Q2

REPORT INFORMATION
  Report Type: Spontaneous
  Country: DE (occurrence: DE)
  Receive Date: 20130220
  Receipt Date: 20130417
  Transmission Date: 20140414
  Serious: Yes (Other)
  Sender: FDA-Public Use
  Company Number: DE-PFIZER INC-2013062632

PATIENT
  Sex: Female

DRUGS (6)
  1. ATENOLOL [Suspect]
     Indication: HYPERTENSION
     Dosage: 12.5MG, DAILY
  2. ATENOLOL [Suspect]
     Dosage: 25 MG, DAILY
     Route: 048
  3. ATENOLOL [Suspect]
     Dosage: 12.5 MG, 2X/DAY
  4. ACERBON [Suspect]
     Dosage: UNK
     Route: 048
     Dates: start: 1998
  5. DYTIDE H [Concomitant]
     Indication: HYPERTENSION
     Dosage: UNK
     Route: 065
  6. RASILEZ [Concomitant]
     Dosage: UNK
     Route: 065

REACTIONS (5)
  - Angioedema [Recovered/Resolved]
  - Oesophageal spasm [Recovered/Resolved]
  - Bradycardia [Recovered/Resolved]
  - Paraesthesia [Unknown]
  - Nausea [Not Recovered/Not Resolved]
